FAERS Safety Report 7070156-3 (Version None)
Quarter: 2010Q4

REPORT INFORMATION
  Report Type: 
  Country: None (occurrence: None)
  Receive Date: 20101028
  Receipt Date: 20100826
  Transmission Date: 20110411
  Serious: No
  Sender: FDA-Public Use
  Company Number: US-WYE-H17148010

PATIENT
  Age: 91 Year
  Sex: Female
  Weight: 63.56 kg

DRUGS (1)
  1. ADVIL [Suspect]
     Indication: INFLAMMATION
     Route: 048
     Dates: start: 20100807, end: 20100812

REACTIONS (2)
  - SOMNOLENCE [None]
  - URTICARIA [None]
